FAERS Safety Report 7515455-3 (Version None)
Quarter: 2011Q2

REPORT INFORMATION
  Report Type: 
  Country: None (occurrence: None)
  Receive Date: 20110601
  Receipt Date: 20110531
  Transmission Date: 20111010
  Serious: Yes (Hospitalization, Other)
  Sender: FDA-Public Use
  Company Number: FR-BRISTOL-MYERS SQUIBB COMPANY-15444755

PATIENT
  Age: 79 Year
  Sex: Female

DRUGS (10)
  1. LOVENOX [Concomitant]
     Dosage: LOVENOX 4000 1 INJECTION
     Route: 058
  2. CEFEPIME [Suspect]
     Indication: ACINETOBACTER INFECTION
     Dosage: 6 G 01-25OCT10. DOSE REDUCED TO 3G ON 25OCT10-09NOV10
     Route: 042
     Dates: start: 20101001, end: 20101109
  3. CIPROFLOXACIN [Suspect]
     Indication: ACINETOBACTER INFECTION
     Dosage: 20SEP10-25OCT10.DOSE REDUCED TO 1000MG ON 25OCT10-27OCT10
     Route: 048
     Dates: start: 20100920, end: 20101027
  4. ESIDRIX [Concomitant]
     Dosage: ESIDREX 25MG;1DF:0.5/D
     Dates: end: 20101212
  5. PROPRANOLOL [Concomitant]
     Dosage: 1DF:2 TABLETS
     Dates: end: 20101212
  6. DEXERYL [Concomitant]
  7. CALCIPARINE [Concomitant]
  8. NEXIUM [Concomitant]
     Dosage: 1 DF= 20MG, ONE TABLET
     Dates: end: 20101212
  9. ENALAPRIL MALEATE [Concomitant]
     Dosage: 1 DF = 1 TAB
     Dates: end: 20101025
  10. GLUCOSE [Concomitant]
     Indication: DEHYDRATION

REACTIONS (6)
  - RENAL FAILURE [None]
  - RESPIRATORY TRACT INFECTION [None]
  - HYPERCREATININAEMIA [None]
  - STATUS EPILEPTICUS [None]
  - ACCIDENTAL OVERDOSE [None]
  - DRUG RASH WITH EOSINOPHILIA AND SYSTEMIC SYMPTOMS [None]
